FAERS Safety Report 15571717 (Version 1)
Quarter: 2018Q4

REPORT INFORMATION
  Report Type: Spontaneous
  Country: US (occurrence: US)
  Receive Date: 20181026
  Receipt Date: 20181026
  Transmission Date: 20190205
  Serious: No
  Sender: FDA-Public Use
  Company Number: None

PATIENT
  Age: 52 Year
  Sex: Female

DRUGS (1)
  1. STELARA [Suspect]
     Active Substance: USTEKINUMAB
     Dates: start: 201809

REACTIONS (5)
  - Product dose omission [None]
  - Arthritis [None]
  - Psoriasis [None]
  - Condition aggravated [None]
  - Product distribution issue [None]

NARRATIVE: CASE EVENT DATE: 20181023
